FAERS Safety Report 13463173 (Version 3)
Quarter: 2017Q4

REPORT INFORMATION
  Report Type: Report from Study
  Country: JP (occurrence: JP)
  Receive Date: 20170420
  Receipt Date: 20171222
  Transmission Date: 20180320
  Serious: Yes (Death)
  Sender: FDA-Public Use
  Company Number: JP-ASTRAZENECA-2017SE39947

PATIENT
  Age: 80 Year
  Sex: Male
  Weight: 45 kg

DRUGS (12)
  1. BROTIZOLAM [Concomitant]
     Active Substance: BROTIZOLAM
     Indication: INSOMNIA
     Dosage: 0.25MG AS REQUIRED
     Route: 048
  2. MINOMYCIN [Concomitant]
     Active Substance: MINOCYCLINE HYDROCHLORIDE
     Indication: PARONYCHIA
     Route: 048
     Dates: start: 20170208, end: 20170215
  3. DAIOKANZOTO [Concomitant]
     Active Substance: LICORICE ROOT EXTRACT\RHUBARB
     Indication: CONSTIPATION
     Route: 048
     Dates: start: 20170212
  4. LOXOPROFEN [Concomitant]
     Active Substance: LOXOPROFEN
     Indication: JOINT INJURY
     Route: 048
  5. TRAMCET [Concomitant]
     Active Substance: ACETAMINOPHEN\TRAMADOL
     Indication: JOINT INJURY
     Route: 048
  6. LOPEMIN [Concomitant]
     Active Substance: LOPERAMIDE HYDROCHLORIDE
     Indication: DIARRHOEA
     Dosage: 1.0MG AS REQUIRED
     Route: 048
     Dates: start: 20170207, end: 20170313
  7. TAGRISSO [Suspect]
     Active Substance: OSIMERTINIB
     Indication: NON-SMALL CELL LUNG CANCER
     Route: 048
     Dates: start: 20170131, end: 20170312
  8. MYSER:CREAM [Concomitant]
     Indication: DERMATITIS
     Dosage: DOSE UNKNOWN, TO MIX WITH HIRUDOID (HEPARINOID)
     Route: 062
     Dates: start: 20170208, end: 20170313
  9. ROZEREM [Concomitant]
     Active Substance: RAMELTEON
     Indication: INSOMNIA
     Route: 048
     Dates: start: 20170210
  10. HIRUDOID [Concomitant]
     Active Substance: GLYCOSAMINOGLYCANS
     Indication: DERMATITIS
     Dosage: DOSE UNKNOWN, TO MIX WITH MYSER:CREAM (DIFLUPREDNATE)
     Route: 062
     Dates: start: 20170208, end: 20170313
  11. RINDERON VG [Concomitant]
     Active Substance: BETAMETHASONE VALERATE\GENTAMICIN SULFATE
     Indication: PARONYCHIA
     Dosage: DOSE UNKNOWN
     Route: 062
     Dates: start: 20170208, end: 20170313
  12. CYTOTEC [Concomitant]
     Active Substance: MISOPROSTOL
     Indication: PROPHYLAXIS AGAINST GASTROINTESTINAL ULCER
     Route: 048

REACTIONS (1)
  - Interstitial lung disease [Fatal]

NARRATIVE: CASE EVENT DATE: 20170313
